FAERS Safety Report 13627932 (Version 1)
Quarter: 2017Q2

REPORT INFORMATION
  Report Type: Spontaneous
  Country: US (occurrence: US)
  Receive Date: 20170531
  Receipt Date: 20170531
  Transmission Date: 20170830
  Serious: Yes (Hospitalization)
  Sender: FDA-Public Use
  Company Number: US-ASTELLAS-1638571

PATIENT
  Sex: Female
  Weight: 48.12 kg

DRUGS (1)
  1. TARCEVA [Suspect]
     Active Substance: ERLOTINIB HYDROCHLORIDE
     Indication: LUNG NEOPLASM MALIGNANT
     Route: 048
     Dates: start: 20150722, end: 20151014

REACTIONS (3)
  - Dyspnoea [Recovered/Resolved]
  - Malaise [Unknown]
  - Pain [Unknown]
